FAERS Safety Report 6266860-7 (Version None)
Quarter: 2009Q3

REPORT INFORMATION
  Report Type: 
  Country: None (occurrence: None)
  Receive Date: 20090710
  Receipt Date: 20090710
  Transmission Date: 20100115
  Serious: Yes (Other)
  Sender: FDA-Public Use
  Company Number: None

PATIENT
  Sex: Male
  Weight: 90.7194 kg

DRUGS (1)
  1. FLOMAX [Suspect]
     Indication: BENIGN PROSTATIC HYPERPLASIA
     Dosage: 0.4MG 1 DAILY MOUTH
     Route: 048
     Dates: start: 20071001, end: 20080910

REACTIONS (2)
  - BLOOD URINE PRESENT [None]
  - RETROGRADE EJACULATION [None]
